FAERS Safety Report 5159592-X (Version None)
Quarter: 2006Q4

REPORT INFORMATION
  Report Type: 
  Country: None (occurrence: None)
  Receive Date: 20061129
  Receipt Date: 20061027
  Transmission Date: 20070319
  Serious: Yes (Hospitalization)
  Sender: FDA-Public Use
  Company Number: FR-AVENTIS-200613783FR

PATIENT
  Age: 64 Year
  Sex: Male

DRUGS (4)
  1. FLAGYL [Suspect]
     Indication: PYREXIA
     Route: 042
  2. FLAGYL [Suspect]
     Indication: CHILLS
     Route: 042
  3. AUGMENTIN [Suspect]
     Indication: PYREXIA
     Route: 042
  4. AUGMENTIN [Suspect]
     Indication: CHILLS
     Route: 042

REACTIONS (3)
  - CHOLESTASIS [None]
  - HEPATIC STEATOSIS [None]
  - PYREXIA [None]
